FAERS Safety Report 7077622-5 (Version None)
Quarter: 2010Q4

REPORT INFORMATION
  Report Type: 
  Country: None (occurrence: None)
  Receive Date: 20101101
  Receipt Date: 20101026
  Transmission Date: 20110411
  Serious: Yes (Hospitalization)
  Sender: FDA-Public Use
  Company Number: US-B.I. PHARMACEUTICALS,INC./RIDGEFIELD-2010-BP-09744BP

PATIENT
  Age: 68 Year
  Sex: Female

DRUGS (11)
  1. AGGRENOX [Suspect]
     Indication: TRANSIENT ISCHAEMIC ATTACK
     Dosage: 25MG/200MG, 1 CAP BID
     Route: 048
     Dates: start: 20100718, end: 20100826
  2. DILTIAZEM [Concomitant]
     Indication: HYPERTENSION
  3. ACARBOSE [Concomitant]
     Indication: TYPE 2 DIABETES MELLITUS
  4. GLIPIZIDE [Concomitant]
  5. SIMVASTATIN [Concomitant]
  6. FUROSEMIDE [Concomitant]
  7. METFORMIN [Concomitant]
  8. HYDRALAZINE [Concomitant]
     Indication: HYPERTENSION
  9. METOPROLOL [Concomitant]
  10. LOSARTAN [Concomitant]
  11. ASPIRIN [Concomitant]

REACTIONS (5)
  - FEELING COLD [None]
  - HAEMATEMESIS [None]
  - NAUSEA [None]
  - TRANSIENT ISCHAEMIC ATTACK [None]
  - VOMITING [None]
